FAERS Safety Report 4374133-2 (Version None)
Quarter: 2004Q2

REPORT INFORMATION
  Report Type: 
  Country: None (occurrence: None)
  Receive Date: 20040609
  Receipt Date: 20040309
  Transmission Date: 20050107
  Serious: Yes (Hospitalization, Disabling)
  Sender: FDA-Public Use
  Company Number: 200413001GDDC

PATIENT
  Age: 43 Year
  Sex: Male

DRUGS (2)
  1. MINIRIN [Suspect]
     Indication: BLEEDING TIME PROLONGED
     Dosage: DOSE: 0.30 UG/KG
     Route: 042
     Dates: start: 20010116, end: 20010116
  2. FERROUS SULFATE TAB [Concomitant]
     Indication: MICROCYTIC ANAEMIA
     Dosage: DOSE: UNK
     Route: 048

REACTIONS (5)
  - DEAFNESS BILATERAL [None]
  - FALL [None]
  - THROMBOCYTOPENIA [None]
  - TINNITUS [None]
  - VERTIGO [None]
